FAERS Safety Report 5228769-7 (Version None)
Quarter: 2007Q1

REPORT INFORMATION
  Report Type: 
  Country: None (occurrence: None)
  Receive Date: 20070131
  Receipt Date: 20070117
  Transmission Date: 20070707
  Serious: Yes (Death, Hospitalization)
  Sender: FDA-Public Use
  Company Number: A-CH2006-13456

PATIENT
  Age: 60 Year
  Sex: Male

DRUGS (4)
  1. TRACLEER [Suspect]
     Indication: PULMONARY HYPERTENSION
     Dosage: ORAL
     Route: 048
     Dates: start: 20050501, end: 20061107
  2. HEPSERA [Concomitant]
  3. MAXILASE (ALPHA-AMYLASE SWINE PANCREAS) [Concomitant]
  4. PREVISCAN (FLUINDIONE) [Concomitant]

REACTIONS (21)
  - ALANINE AMINOTRANSFERASE INCREASED [None]
  - ANURIA [None]
  - ASPARTATE AMINOTRANSFERASE INCREASED [None]
  - BLOOD CREATINE PHOSPHOKINASE INCREASED [None]
  - CYTOLYTIC HEPATITIS [None]
  - EOSINOPHILIA [None]
  - FATIGUE [None]
  - FEELING ABNORMAL [None]
  - HEPATIC FAILURE [None]
  - LUNG INFECTION [None]
  - MALAISE [None]
  - NO THERAPEUTIC RESPONSE [None]
  - OEDEMA PERIPHERAL [None]
  - PAIN IN EXTREMITY [None]
  - PULMONARY HYPERTENSION [None]
  - PULMONARY SEPSIS [None]
  - RENAL FAILURE [None]
  - RHABDOMYOLYSIS [None]
  - RIGHT VENTRICULAR FAILURE [None]
  - SEPTIC SHOCK [None]
  - TOXOPLASMOSIS [None]
